FAERS Safety Report 14526535 (Version 1)
Quarter: 2018Q1

REPORT INFORMATION
  Report Type: Spontaneous
  Country: US (occurrence: US)
  Receive Date: 20180212
  Receipt Date: 20180212
  Transmission Date: 20180509
  Serious: Yes (Hospitalization)
  Sender: FDA-Public Use
  Company Number: None

PATIENT
  Age: 46 Year
  Sex: Female

DRUGS (26)
  1. ADVAIR DISKUS [Concomitant]
     Active Substance: FLUTICASONE PROPIONATE\SALMETEROL XINAFOATE
  2. CALCIFEROL [Concomitant]
     Active Substance: ERGOCALCIFEROL
  3. DEXILANT [Concomitant]
     Active Substance: DEXLANSOPRAZOLE
  4. SILDENAFIL 20MG [Suspect]
     Active Substance: SILDENAFIL
     Indication: PULMONARY ARTERIAL HYPERTENSION
     Route: 048
     Dates: start: 201702
  5. AZELASTINE. [Concomitant]
     Active Substance: AZELASTINE HYDROCHLORIDE
  6. BUMETANIDE. [Concomitant]
     Active Substance: BUMETANIDE
  7. GELUSIL [Concomitant]
     Active Substance: ALUMINUM HYDROXIDE\DIMETHICONE\MAGNESIUM HYDROXIDE
  8. KINERET [Concomitant]
     Active Substance: ANAKINRA
  9. PENNSAID [Concomitant]
     Active Substance: DICLOFENAC SODIUM
  10. TRIAMINIC CHILDRENS NIGHT TIME COLD AND COUGH [Concomitant]
     Active Substance: DIPHENHYDRAMINE HYDROCHLORIDE\PHENYLEPHRINE HYDROCHLORIDE
  11. ZOLOFT [Concomitant]
     Active Substance: SERTRALINE HYDROCHLORIDE
  12. MIRALAX [Concomitant]
     Active Substance: POLYETHYLENE GLYCOL 3350
  13. NEURONTIN [Concomitant]
     Active Substance: GABAPENTIN
  14. TOVIAZ [Concomitant]
     Active Substance: FESOTERODINE FUMARATE
  15. FUROSEMIDE. [Concomitant]
     Active Substance: FUROSEMIDE
  16. MUCINEX [Concomitant]
     Active Substance: GUAIFENESIN
  17. MYRBETRIQ [Concomitant]
     Active Substance: MIRABEGRON
  18. SUCRALFATE. [Concomitant]
     Active Substance: SUCRALFATE
  19. XARELTO [Concomitant]
     Active Substance: RIVAROXABAN
  20. IPRATROPIUM/SOL ALBUTEROL [Concomitant]
  21. LETAIRIS [Concomitant]
     Active Substance: AMBRISENTAN
  22. MORPHINE SULFATE. [Concomitant]
     Active Substance: MORPHINE SULFATE
  23. HCTZ [Concomitant]
     Active Substance: HYDROCHLOROTHIAZIDE
  24. MUPRIROCIN [Concomitant]
  25. PROAIR HFA [Concomitant]
     Active Substance: ALBUTEROL SULFATE
  26. SINGULAIR [Concomitant]
     Active Substance: MONTELUKAST SODIUM

REACTIONS (3)
  - Heart rate decreased [None]
  - Incorrect dose administered [None]
  - Drug dose omission [None]

NARRATIVE: CASE EVENT DATE: 20180129
